FAERS Safety Report 11910656 (Version 2)
Quarter: 2016Q1

REPORT INFORMATION
  Report Type: Spontaneous
  Country: BR (occurrence: BR)
  Receive Date: 20160112
  Receipt Date: 20160119
  Transmission Date: 20160526
  Serious: Yes (Hospitalization)
  Sender: FDA-Public Use
  Company Number: BR-PFIZER INC-2015476908

PATIENT
  Age: 66 Year
  Sex: Female
  Weight: 69 kg

DRUGS (6)
  1. FARMORUBICINA [Suspect]
     Active Substance: EPIRUBICIN HYDROCHLORIDE
     Indication: BREAST NEOPLASM
     Dosage: 1762 MG, EVERY 21 DAYS
     Route: 042
     Dates: start: 20151020, end: 20151112
  2. SERETIDE [Concomitant]
     Active Substance: FLUTICASONE FUROATE\SALMETEROL XINAFOATE
     Dosage: UNK
  3. FAULDFLUOR [Suspect]
     Active Substance: FLUOROURACIL
     Indication: BREAST NEOPLASM
     Dosage: 881 MG, EVERY 21 DAYS
     Route: 042
     Dates: start: 20151020
  4. FAULDFLUOR [Suspect]
     Active Substance: FLUOROURACIL
     Dosage: 881 MG, EVERY 21 DAYS
     Route: 042
     Dates: end: 20151112
  5. NATRILIX [Concomitant]
     Active Substance: INDAPAMIDE
     Dosage: UNK
  6. GENUXAL [Suspect]
     Active Substance: CYCLOPHOSPHAMIDE
     Indication: BREAST NEOPLASM
     Dosage: 881 MG, EVERY 21 DAYS
     Route: 042
     Dates: start: 20151020, end: 20151112

REACTIONS (2)
  - Febrile neutropenia [Recovered/Resolved]
  - Breast abscess [Recovered/Resolved]

NARRATIVE: CASE EVENT DATE: 2015
